FAERS Safety Report 8807034 (Version 2)
Quarter: 2012Q4

REPORT INFORMATION
  Report Type: 
  Country: IE (occurrence: IE)
  Receive Date: 20120925
  Receipt Date: 20121015
  Transmission Date: 20130627
  Serious: Yes (Death, Other)
  Sender: FDA-Public Use
  Company Number: PHFR2012IE002341

PATIENT
  Sex: Male
  Weight: 98 kg

DRUGS (13)
  1. CLOZARIL [Suspect]
     Indication: SCHIZOPHRENIA
     Dosage: 200 mg in morning, 200 mg in evening
     Route: 048
     Dates: start: 20021230
  2. CLOZARIL [Suspect]
     Dosage: 400 mg and 350 mg at unspecified time total 750 mg/day
     Route: 048
  3. WARFARIN [Concomitant]
     Indication: DEEP VEIN THROMBOSIS
     Dosage: UNK UKN, UNK
     Dates: start: 201104
  4. AMISULPRIDE [Concomitant]
     Dosage: 1000 mgs (400 mgs mane and 600 mgs in nocte)
     Route: 048
  5. ARIPIPRAZOLE [Concomitant]
     Dosage: 25 mg (10 mgs mane, 15 mgs nocte)
     Route: 048
  6. VALPROATE SODIUM [Concomitant]
     Dosage: 800 mg BD
  7. PROCYCLIDINE [Concomitant]
     Dosage: 5 mgs OD
  8. OMACOR [Concomitant]
     Dosage: UNK UKN, QD
  9. ATORVASTATIN [Concomitant]
     Indication: HYPERCHOLESTEROLAEMIA
     Dosage: 20 mgs nocte
     Route: 048
  10. BRICANYL TURBUHALER [Concomitant]
     Indication: CHRONIC OBSTRUCTIVE PULMONARY DISEASE
     Dosage: BID
  11. BUMETANIDE [Concomitant]
     Dosage: 1 mg mane
  12. COMBIVENT [Concomitant]
     Indication: CHRONIC OBSTRUCTIVE PULMONARY DISEASE
     Dosage: TID
  13. OLMESARTAN [Concomitant]
     Dosage: 10 mgs mane

REACTIONS (3)
  - Left ventricular failure [Fatal]
  - Arteriosclerosis coronary artery [Fatal]
  - Fall [Unknown]
